FAERS Safety Report 21090052 (Version 1)
Quarter: 2022Q3

REPORT INFORMATION
  Report Type: Spontaneous
  Country: AU (occurrence: AU)
  Receive Date: 20220715
  Receipt Date: 20220715
  Transmission Date: 20221026
  Serious: Yes (Hospitalization, Other)
  Sender: FDA-Public Use
  Company Number: AU-002147023-NVSC2022AU157692

PATIENT

DRUGS (32)
  1. DICLOFENAC [Suspect]
     Active Substance: DICLOFENAC
     Indication: Product used for unknown indication
     Dosage: 1 %, TID
     Route: 061
  2. ACETAMINOPHEN [Suspect]
     Active Substance: ACETAMINOPHEN
     Indication: Product used for unknown indication
     Dosage: 1 G, QID
     Route: 065
  3. ASPIRIN [Suspect]
     Active Substance: ASPIRIN
     Indication: Product used for unknown indication
     Dosage: 100 MG, QD
     Route: 065
  4. ATORVASTATIN [Suspect]
     Active Substance: ATORVASTATIN
     Indication: Product used for unknown indication
     Dosage: 80 MG, QD (MORNING)
     Route: 065
  5. PREGABALIN [Suspect]
     Active Substance: PREGABALIN
     Indication: Product used for unknown indication
     Dosage: 50 MG, BID
     Route: 065
  6. QUETIAPINE [Suspect]
     Active Substance: QUETIAPINE
     Indication: Product used for unknown indication
     Dosage: UNK
     Route: 065
  7. PERINDOPRIL [Suspect]
     Active Substance: PERINDOPRIL
     Indication: Product used for unknown indication
     Dosage: 5 MG, QN (NIGHT, 2 WEEKS BLISTER)
     Route: 065
  8. OLANZAPINE [Suspect]
     Active Substance: OLANZAPINE
     Indication: Product used for unknown indication
     Dosage: 10 MG (2 WEEKS BLISTER)
     Route: 030
  9. METFORMIN HYDROCHLORIDE [Suspect]
     Active Substance: METFORMIN HYDROCHLORIDE
     Indication: Product used for unknown indication
     Dosage: 1.5 G, QD (MORNING) XR
     Route: 065
  10. CLOZAPINE [Suspect]
     Active Substance: CLOZAPINE
     Indication: Schizoaffective disorder
     Dosage: 425 MG, QN (NIGHT) (SINCE 1990S) (2 WEEKS BLSITER)
     Route: 065
  11. CLOZAPINE [Suspect]
     Active Substance: CLOZAPINE
     Indication: Schizophrenia
     Dosage: 200 MG (PLAN TO INCREASE 50 MG PER WEEK INCREASE TO 250 MG STARTING ON 3RD OF JUN UP TO 350)
     Route: 065
  12. CLOZAPINE [Suspect]
     Active Substance: CLOZAPINE
     Dosage: 125 MG
     Route: 065
  13. CLOZAPINE [Suspect]
     Active Substance: CLOZAPINE
     Dosage: 350 MG
     Route: 065
  14. CLOZAPINE [Suspect]
     Active Substance: CLOZAPINE
     Dosage: 400 MG
     Route: 065
  15. CLOZAPINE [Suspect]
     Active Substance: CLOZAPINE
     Dosage: 450 MG
     Route: 065
  16. CLOZAPINE [Suspect]
     Active Substance: CLOZAPINE
     Dosage: 75 MG
     Route: 065
  17. CLOZAPINE [Suspect]
     Active Substance: CLOZAPINE
     Dosage: 250 MG
     Route: 065
  18. CLOZAPINE [Suspect]
     Active Substance: CLOZAPINE
     Dosage: 12.5 MG
     Route: 065
  19. CLOZAPINE [Suspect]
     Active Substance: CLOZAPINE
     Dosage: 225 MG
     Route: 065
  20. CLOZAPINE [Suspect]
     Active Substance: CLOZAPINE
     Dosage: UNK
     Route: 065
     Dates: start: 20091121
  21. CLOZAPINE [Suspect]
     Active Substance: CLOZAPINE
     Dosage: 325 MG
     Route: 065
  22. GLICLAZIDE [Suspect]
     Active Substance: GLICLAZIDE
     Indication: Product used for unknown indication
     Dosage: 60 MG, QD (MORNING)
     Route: 065
  23. LITHIUM [Suspect]
     Active Substance: LITHIUM
     Indication: Prophylaxis
     Dosage: 500 MG, QN (NIGHT)
     Route: 065
  24. LITHIUM [Suspect]
     Active Substance: LITHIUM
     Indication: Mania
     Dosage: 1500 MG, QN (NIGHT)
     Route: 065
  25. LITHIUM [Suspect]
     Active Substance: LITHIUM
     Dosage: 1000 MG, QN (NIGHT)
     Route: 065
  26. LITHIUM [Suspect]
     Active Substance: LITHIUM
     Dosage: 500 MG, QD  (MORNING) (2 WEEKS BLISTER)(LEVEL PENDING ON 20TH JUL)
     Route: 065
  27. VALPROATE [Suspect]
     Active Substance: VALPROIC ACID
     Indication: Product used for unknown indication
     Dosage: UNK, BID (500MG IN MORNING AND 1G AT NIGHT) (ENTERIC COATED) (2 WEEKS BLISTER)
     Route: 048
  28. DOCUSATE SODIUM\SENNOSIDES A AND B [Suspect]
     Active Substance: DOCUSATE SODIUM\SENNOSIDES A AND B
     Indication: Product used for unknown indication
     Dosage: 2 DF, BID
     Route: 065
  29. ATROPINE [Suspect]
     Active Substance: ATROPINE
     Indication: Product used for unknown indication
     Dosage: UNK, QD (DROP ON TONGUE, MORNING)
     Route: 048
  30. TEMAZEPAM [Suspect]
     Active Substance: TEMAZEPAM
     Indication: Product used for unknown indication
     Dosage: 10 MG, QN (NIGHT)
     Route: 065
  31. CRESTOR [Suspect]
     Active Substance: ROSUVASTATIN CALCIUM
     Indication: Product used for unknown indication
     Dosage: 20 MG, QN (NIGHT, 2 WEEKS BLISTER)
     Route: 065
  32. CLOZAPINE [Suspect]
     Active Substance: CLOZAPINE
     Indication: Product used for unknown indication
     Dosage: UNK
     Route: 065
     Dates: start: 20101007

REACTIONS (62)
  - Mental disorder [Recovering/Resolving]
  - Agitated depression [Unknown]
  - Pain in extremity [Unknown]
  - Hypertension [Unknown]
  - Behaviour disorder [Unknown]
  - Contusion [Unknown]
  - Catatonia [Unknown]
  - Cerebral infarction [Unknown]
  - Blood creatine phosphokinase increased [Recovering/Resolving]
  - Cardiomyopathy [Unknown]
  - Muscle injury [Unknown]
  - Fatigue [Unknown]
  - Constipation [Unknown]
  - Delirium [Recovering/Resolving]
  - Delusion of grandeur [Unknown]
  - Schizophrenia [Not Recovered/Not Resolved]
  - Schizoaffective disorder [Not Recovered/Not Resolved]
  - Sleep disorder [Recovering/Resolving]
  - Hirsutism [Unknown]
  - Fall [Unknown]
  - Somnolence [Unknown]
  - Consciousness fluctuating [Unknown]
  - Humerus fracture [Unknown]
  - Hyperthermia [Unknown]
  - Memory impairment [Recovering/Resolving]
  - Autonomic nervous system imbalance [Unknown]
  - Arthralgia [Unknown]
  - Toxicity to various agents [Unknown]
  - Balance disorder [Unknown]
  - Hypercalcaemia [Unknown]
  - Myocarditis [Unknown]
  - Mania [Unknown]
  - Euphoric mood [Not Recovered/Not Resolved]
  - Bipolar I disorder [Unknown]
  - Psychotic disorder [Unknown]
  - Delusion [Unknown]
  - Affect lability [Unknown]
  - Amnesia [Unknown]
  - Obsessive-compulsive disorder [Unknown]
  - Osteoporosis [Unknown]
  - Judgement impaired [Not Recovered/Not Resolved]
  - Somatic symptom disorder [Not Recovered/Not Resolved]
  - Frustration tolerance decreased [Unknown]
  - Abdominal pain [Not Recovered/Not Resolved]
  - Dehydration [Unknown]
  - Anosognosia [Recovering/Resolving]
  - Pressure of speech [Not Recovered/Not Resolved]
  - Drug ineffective [Unknown]
  - Muscle rigidity [Unknown]
  - Seasonal affective disorder [Unknown]
  - Rebound psychosis [Unknown]
  - Irritability [Unknown]
  - Paranoia [Unknown]
  - Flight of ideas [Unknown]
  - Anger [Unknown]
  - Troponin increased [Unknown]
  - Movement disorder [Unknown]
  - Agitation [Not Recovered/Not Resolved]
  - Emotional distress [Unknown]
  - Hypophagia [Unknown]
  - Vitamin D deficiency [Unknown]
  - Anxiety [Not Recovered/Not Resolved]

NARRATIVE: CASE EVENT DATE: 20090101
